FAERS Safety Report 20228999 (Version 2)
Quarter: 2022Q1

REPORT INFORMATION
  Report Type: Other
  Country: DE (occurrence: DE)
  Receive Date: 20211225
  Receipt Date: 20220209
  Transmission Date: 20220424
  Serious: Yes (Other)
  Sender: FDA-Public Use
  Company Number: None

PATIENT
  Age: 38 Year
  Sex: Male
  Weight: 100 kg

DRUGS (2)
  1. ZIPRASIDONE [Suspect]
     Active Substance: ZIPRASIDONE
     Indication: Product used for unknown indication
     Dosage: 40 MILLIGRAM
     Route: 048
  2. AMISULPRIDE [Suspect]
     Active Substance: AMISULPRIDE
     Indication: Product used for unknown indication
     Dosage: UNK
     Route: 048
     Dates: start: 20100101

REACTIONS (7)
  - Osteomalacia [Recovered/Resolved with Sequelae]
  - Withdrawal syndrome [Recovering/Resolving]
  - Muscle spasms [Recovered/Resolved with Sequelae]
  - Rash [Recovered/Resolved with Sequelae]
  - Hypokinesia [Recovered/Resolved with Sequelae]
  - Schizophreniform disorder [Recovering/Resolving]
  - Akathisia [Recovered/Resolved with Sequelae]

NARRATIVE: CASE EVENT DATE: 20100115
